FAERS Safety Report 12798062 (Version 1)
Quarter: 2016Q3

REPORT INFORMATION
  Report Type: Spontaneous
  Country: US (occurrence: US)
  Receive Date: 20160930
  Receipt Date: 20160930
  Transmission Date: 20161109
  Serious: No
  Sender: FDA-Public Use
  Company Number: None

PATIENT
  Age: 44 Year
  Sex: Female

DRUGS (1)
  1. ENBREL [Suspect]
     Active Substance: ETANERCEPT
     Indication: RHEUMATOID ARTHRITIS
     Route: 058
     Dates: start: 20160528

REACTIONS (5)
  - Appendicitis perforated [None]
  - Infection [None]
  - Therapy cessation [None]
  - Ill-defined disorder [None]
  - Refusal of treatment by patient [None]

NARRATIVE: CASE EVENT DATE: 20160720
